FAERS Safety Report 7755087-5 (Version None)
Quarter: 2011Q3

REPORT INFORMATION
  Report Type: 
  Country: None (occurrence: None)
  Receive Date: 20110913
  Receipt Date: 20110831
  Transmission Date: 20111222
  Serious: Yes (Other)
  Sender: FDA-Public Use
  Company Number: 2011-3623

PATIENT
  Age: 7 Year
  Sex: Female
  Weight: 26 kg

DRUGS (1)
  1. INCRELEX [Suspect]
     Indication: RETT'S DISORDER
     Dosage: 2.2 MG (1.1 MG, 2 IN 1 D)
     Dates: start: 20110819

REACTIONS (2)
  - GASTRITIS VIRAL [None]
  - ANXIETY [None]
